FAERS Safety Report 21781140 (Version 1)
Quarter: 2022Q4

REPORT INFORMATION
  Report Type: Report from Study
  Country: US (occurrence: US)
  Receive Date: 20221227
  Receipt Date: 20221227
  Transmission Date: 20230113
  Serious: Yes (Hospitalization)
  Sender: FDA-Public Use
  Company Number: US-002147023-NVSC2022US296761

PATIENT
  Age: 75 Year
  Sex: Male

DRUGS (2)
  1. ENTRESTO [Suspect]
     Active Substance: SACUBITRIL\VALSARTAN
     Indication: Product used for unknown indication
     Dosage: 24.26 MG, BID
     Route: 048
     Dates: start: 202203, end: 202208
  2. ENTRESTO [Suspect]
     Active Substance: SACUBITRIL\VALSARTAN
     Dosage: UNK
     Route: 065
     Dates: start: 202209

REACTIONS (6)
  - Myocardial infarction [Recovered/Resolved]
  - Lumbar vertebral fracture [Recovered/Resolved]
  - Movement disorder [Recovered/Resolved]
  - Pain in extremity [Recovered/Resolved]
  - Tremor [Recovering/Resolving]
  - Dysgraphia [Unknown]

NARRATIVE: CASE EVENT DATE: 20220901
